FAERS Safety Report 7138250-6 (Version None)
Quarter: 2010Q4

REPORT INFORMATION
  Report Type: 
  Country: None (occurrence: None)
  Receive Date: 20101103
  Receipt Date: 20100520
  Transmission Date: 20110411
  Serious: Yes (Other)
  Sender: FDA-Public Use
  Company Number: US-WYE-H15278410

PATIENT
  Age: 74 Year
  Sex: Female

DRUGS (3)
  1. EFFEXOR XR [Suspect]
     Indication: DEPRESSION
     Dosage: 175 MG^ CAPSULE IN THE MORNING, INCREASED  TO THREE ^175 MG^ CAPSULES DAILY
     Dates: start: 20040101
  2. NEXIUM [Concomitant]
  3. ASPIRIN [Concomitant]

REACTIONS (8)
  - BLOOD PRESSURE INCREASED [None]
  - CEREBROVASCULAR ACCIDENT [None]
  - INSOMNIA [None]
  - MYOCARDIAL INFARCTION [None]
  - PANIC ATTACK [None]
  - POOR PERIPHERAL CIRCULATION [None]
  - SOCIAL AVOIDANT BEHAVIOUR [None]
  - SUICIDAL IDEATION [None]
